FAERS Safety Report 23824958 (Version 1)
Quarter: 2024Q2

REPORT INFORMATION
  Report Type: Other
  Country: US (occurrence: US)
  Receive Date: 20240507
  Receipt Date: 20240507
  Transmission Date: 20240716
  Serious: No
  Sender: FDA-Public Use
  Company Number: US-Nostrum Laboratories, Inc.-2156592

PATIENT
  Age: 38 Year
  Sex: Female

DRUGS (1)
  1. ACETAMINOPHEN\HYDROCODONE BITARTRATE [Suspect]
     Active Substance: ACETAMINOPHEN\HYDROCODONE BITARTRATE
     Indication: Product used for unknown indication
     Route: 048

REACTIONS (1)
  - Postural orthostatic tachycardia syndrome [Unknown]
